FAERS Safety Report 16057441 (Version 3)
Quarter: 2020Q3

REPORT INFORMATION
  Report Type: Spontaneous
  Country: US (occurrence: US)
  Receive Date: 20190311
  Receipt Date: 20200723
  Transmission Date: 20201102
  Serious: No
  Sender: FDA-Public Use
  Company Number: US-PFIZER INC-2019106662

PATIENT
  Age: 48 Year
  Sex: Female

DRUGS (4)
  1. XELJANZ XR [Suspect]
     Active Substance: TOFACITINIB CITRATE
     Indication: RHEUMATOID ARTHRITIS
     Dosage: 11 MG, UNK
     Dates: start: 20180604
  2. XELJANZ XR [Suspect]
     Active Substance: TOFACITINIB CITRATE
     Dosage: 11 MG, 1X/DAY
     Route: 048
  3. ALEVE [Concomitant]
     Active Substance: NAPROXEN SODIUM
     Indication: PAIN
     Dosage: UNK
  4. XELJANZ XR [Suspect]
     Active Substance: TOFACITINIB CITRATE
     Dosage: 11 MG, UNK
     Dates: start: 20190603

REACTIONS (11)
  - Anaemia [Unknown]
  - Paraesthesia [Unknown]
  - Blood pressure increased [Unknown]
  - Sinusitis [Unknown]
  - Trigger finger [Unknown]
  - Pain [Unknown]
  - Fatigue [Unknown]
  - Joint stiffness [Unknown]
  - Joint swelling [Unknown]
  - Malaise [Unknown]
  - Headache [Unknown]
